FAERS Safety Report 26205548 (Version 1)
Quarter: 2025Q4

REPORT INFORMATION
  Report Type: Report from Study
  Country: US (occurrence: US)
  Receive Date: 20251228
  Receipt Date: 20251228
  Transmission Date: 20260117
  Serious: Yes (Other)
  Sender: ABBVIE
  Company Number: US-ABBVIE-6606836

PATIENT
  Sex: Male

DRUGS (2)
  1. CREON [Suspect]
     Active Substance: PANCRELIPASE AMYLASE\PANCRELIPASE LIPASE\PANCRELIPASE PROTEASE
     Indication: Product used for unknown indication
     Dosage: 1 OR 2 NOT WITH EVERY MEAL
     Route: 048
     Dates: start: 20151201
  2. CREON [Suspect]
     Active Substance: PANCRELIPASE AMYLASE\PANCRELIPASE LIPASE\PANCRELIPASE PROTEASE
     Indication: Product used for unknown indication
     Dosage: 7 TO 8 CREON A DAY
     Route: 048
     Dates: start: 202510

REACTIONS (8)
  - Gastrointestinal tube insertion [Recovering/Resolving]
  - Weight decreased [Recovering/Resolving]
  - Inappropriate schedule of product administration [Recovering/Resolving]
  - Abdominal discomfort [Unknown]
  - Poor quality product administered [Unknown]
  - Product dose omission in error [Unknown]
  - Pancreatitis acute [Unknown]
  - Device expulsion [Not Recovered/Not Resolved]
